FAERS Safety Report 20835085 (Version 1)
Quarter: 2022Q2

REPORT INFORMATION
  Report Type: Spontaneous
  Country: CN (occurrence: CN)
  Receive Date: 20220516
  Receipt Date: 20220516
  Transmission Date: 20220721
  Serious: Yes (Other)
  Sender: FDA-Public Use
  Company Number: CN-009507513-2205CHN003914

PATIENT
  Age: 69 Year
  Sex: Male
  Weight: 65 kg

DRUGS (6)
  1. KEYTRUDA [Suspect]
     Active Substance: PEMBROLIZUMAB
     Indication: Carcinoid tumour pulmonary
     Dosage: 200 MG, ONCE
     Route: 041
     Dates: start: 20220401, end: 20220401
  2. ETOPOSIDE [Suspect]
     Active Substance: ETOPOSIDE
     Indication: Carcinoid tumour pulmonary
     Dosage: 100 MG, QD
     Route: 041
     Dates: start: 20220331, end: 20220403
  3. CARBOPLATIN [Suspect]
     Active Substance: CARBOPLATIN
     Indication: Carcinoid tumour pulmonary
     Dosage: 0.3 G, QD
     Route: 041
     Dates: start: 20220331, end: 20220331
  4. SODIUM CHLORIDE [Concomitant]
     Active Substance: SODIUM CHLORIDE
     Indication: Medication dilution
     Dosage: 500 ML, QD
     Route: 041
     Dates: start: 20220331, end: 20220403
  5. SODIUM CHLORIDE [Concomitant]
     Active Substance: SODIUM CHLORIDE
     Dosage: 100 ML, ONCE
     Route: 041
     Dates: start: 20220401, end: 20220401
  6. DEXTROSE [Concomitant]
     Active Substance: DEXTROSE
     Indication: Medication dilution
     Dosage: 500 ML, QD
     Route: 041
     Dates: start: 20220331, end: 20220331

REACTIONS (7)
  - Full blood count decreased [Recovering/Resolving]
  - White blood cell count decreased [Unknown]
  - White blood cell count increased [Unknown]
  - Neutrophil count increased [Unknown]
  - Neutrophil count decreased [Unknown]
  - Platelet count decreased [Unknown]
  - Product use in unapproved indication [Unknown]

NARRATIVE: CASE EVENT DATE: 20220401
